FAERS Safety Report 12877976 (Version 2)
Quarter: 2017Q3

REPORT INFORMATION
  Report Type: Report from Study
  Country: US (occurrence: US)
  Receive Date: 20161024
  Receipt Date: 20170926
  Transmission Date: 20171127
  Serious: Yes (Other)
  Sender: FDA-Public Use
  Company Number: PHHY2016US019376

PATIENT
  Age: 51 Year
  Sex: Male

DRUGS (1)
  1. GILENYA [Suspect]
     Active Substance: FINGOLIMOD HYDROCHLORIDE
     Indication: MULTIPLE SCLEROSIS
     Dosage: UNK, QD
     Route: 048

REACTIONS (7)
  - Sinus bradycardia [Unknown]
  - Skin fissures [Recovered/Resolved]
  - Skin lesion [Recovered/Resolved]
  - Central nervous system lesion [Unknown]
  - Liver function test increased [Unknown]
  - Condition aggravated [Unknown]
  - Morton^s neuralgia [Unknown]

NARRATIVE: CASE EVENT DATE: 20151130
